FAERS Safety Report 4414423-8 (Version None)
Quarter: 2004Q3

REPORT INFORMATION
  Report Type: 
  Country: None (occurrence: None)
  Receive Date: 20040701
  Receipt Date: 20040510
  Transmission Date: 20050211
  Serious: Yes (Other)
  Sender: FDA-Public Use
  Company Number: 200417827BWH

PATIENT
  Age: 70 Year
  Sex: Male
  Weight: 79.3795 kg

DRUGS (12)
  1. CIPRO XR [Suspect]
     Indication: BLADDER CATHETERISATION
     Dosage: 1000 MG, TOTAL DAILY, ORAL
     Route: 048
     Dates: start: 20040401
  2. CIPRO XR [Suspect]
     Indication: PROPHYLAXIS
     Dosage: 1000 MG, TOTAL DAILY, ORAL
     Route: 048
     Dates: start: 20040401
  3. ASPIRIN [Concomitant]
  4. COREG [Concomitant]
  5. COZAAR [Concomitant]
  6. LAXIS/SWE/ [Concomitant]
  7. MULTI-VITAMIN [Concomitant]
  8. FOLIC ACID [Concomitant]
  9. DIGOXIN [Concomitant]
  10. VIOXX [Concomitant]
  11. LIPITOR [Concomitant]
  12. WARFARIN SODIUM [Concomitant]

REACTIONS (2)
  - DEAFNESS [None]
  - PYREXIA [None]
